FAERS Safety Report 6193626-9 (Version None)
Quarter: 2009Q2

REPORT INFORMATION
  Report Type: 
  Country: None (occurrence: None)
  Receive Date: 20090514
  Receipt Date: 20090430
  Transmission Date: 20091009
  Serious: Yes (Other)
  Sender: FDA-Public Use
  Company Number: 2009PL000188

PATIENT
  Age: 59 Year
  Sex: Female

DRUGS (1)
  1. LOTRONEX [Suspect]

REACTIONS (1)
  - COLITIS ISCHAEMIC [None]
